FAERS Safety Report 18410805 (Version 1)
Quarter: 2020Q4

REPORT INFORMATION
  Report Type: Spontaneous
  Country: US (occurrence: US)
  Receive Date: 20201021
  Receipt Date: 20201021
  Transmission Date: 20210114
  Serious: Yes (Other)
  Sender: FDA-Public Use
  Company Number: None

PATIENT
  Age: 72 Year
  Sex: Female
  Weight: 72.9 kg

DRUGS (10)
  1. LORTADANE [Concomitant]
  2. OMEPRAZOLE. [Concomitant]
     Active Substance: OMEPRAZOLE
  3. GABAPETIN [Concomitant]
     Active Substance: GABAPENTIN
  4. VITAMIN D [Concomitant]
     Active Substance: VITAMIN D NOS
  5. FISH OIL [Concomitant]
     Active Substance: FISH OIL
  6. MELATONIN [Concomitant]
     Active Substance: MELATONIN
  7. EUTHYROX [Suspect]
     Active Substance: LEVOTHYROXINE SODIUM
     Indication: HYPOTHYROIDISM
     Dosage: ?          QUANTITY:1 TABLET(S);?
     Route: 048
     Dates: start: 20200614, end: 20201018
  8. LEVOTHYROXINE. [Concomitant]
     Active Substance: LEVOTHYROXINE
  9. HAIR SKIN NAILS VITAMINS [Concomitant]
  10. CORN SILK [Concomitant]

REACTIONS (5)
  - Product substitution issue [None]
  - Speech disorder [None]
  - Feeling abnormal [None]
  - Disorientation [None]
  - Mental impairment [None]

NARRATIVE: CASE EVENT DATE: 20200821
